FAERS Safety Report 25587462 (Version 1)
Quarter: 2025Q3

REPORT INFORMATION
  Report Type: Spontaneous
  Country: CN (occurrence: CN)
  Receive Date: 20250721
  Receipt Date: 20250721
  Transmission Date: 20251021
  Serious: Yes (Other)
  Sender: AMGEN
  Company Number: CN-AMGEN-CHNSP2025138982

PATIENT

DRUGS (3)
  1. PROLIA [Suspect]
     Active Substance: DENOSUMAB
     Indication: Osteoporosis postmenopausal
     Dosage: 60 MILLIGRAM, Q6MO
     Route: 058
  2. CALCIUM [Concomitant]
     Active Substance: CALCIUM
     Dosage: 1000 MILLIGRAM, QD
  3. VITAMIN D [Concomitant]
     Active Substance: VITAMIN D NOS
     Dosage: 800 INTERNATIONAL UNIT, QD

REACTIONS (21)
  - COVID-19 [Unknown]
  - Myocardial ischaemia [Unknown]
  - Supraventricular extrasystoles [Unknown]
  - Ventricular extrasystoles [Unknown]
  - Sinus bradycardia [Unknown]
  - Sinus tachycardia [Unknown]
  - Urinary tract infection [Unknown]
  - Infection [Unknown]
  - Vitamin D decreased [Unknown]
  - Blood parathyroid hormone increased [Unknown]
  - Weight increased [Unknown]
  - Blood creatinine increased [Unknown]
  - Haematuria [Unknown]
  - Vitamin D deficiency [Unknown]
  - Headache [Unknown]
  - Dizziness [Unknown]
  - Loose tooth [Unknown]
  - Hyperparathyroidism secondary [Unknown]
  - Pyrexia [Unknown]
  - Anaemia [Unknown]
  - Hypocalcaemia [Unknown]
